FAERS Safety Report 6602320-9 (Version None)
Quarter: 2010Q1

REPORT INFORMATION
  Report Type: 
  Country: None (occurrence: None)
  Receive Date: 20100225
  Receipt Date: 20100219
  Transmission Date: 20100710
  Serious: Yes (Life-Threatening, Hospitalization, Disabling, Other)
  Sender: FDA-Public Use
  Company Number: A0812583A

PATIENT
  Age: 50 Year
  Sex: Female
  Weight: 63.6 kg

DRUGS (8)
  1. LAMOTRIGINE [Suspect]
     Indication: CONVULSION
     Dosage: 300MG TWICE PER DAY
     Route: 048
     Dates: start: 19991204, end: 20091103
  2. AUGMENTIN XR [Concomitant]
     Route: 001
  3. ATIVAN [Concomitant]
     Dosage: .5MG AS REQUIRED
  4. AMANTADINE HCL [Concomitant]
     Dosage: 100MG PER DAY
  5. IBUPROFEN [Concomitant]
  6. PREDNISONE TAB [Concomitant]
  7. VALIUM [Concomitant]
  8. ANTIVERT [Concomitant]

REACTIONS (16)
  - AMNESIA [None]
  - ATAXIA [None]
  - CONVULSION [None]
  - DISORIENTATION [None]
  - DRUG INEFFECTIVE [None]
  - FEELING ABNORMAL [None]
  - GAIT DISTURBANCE [None]
  - IMPAIRED DRIVING ABILITY [None]
  - LETHARGY [None]
  - MENTAL STATUS CHANGES [None]
  - PAIN IN EXTREMITY [None]
  - SOMNOLENCE [None]
  - STATUS EPILEPTICUS [None]
  - TREMOR [None]
  - VERTIGO [None]
  - WEIGHT INCREASED [None]
